FAERS Safety Report 7033905-6 (Version None)
Quarter: 2010Q4

REPORT INFORMATION
  Report Type: 
  Country: None (occurrence: None)
  Receive Date: 20101007
  Receipt Date: 20100929
  Transmission Date: 20110411
  Serious: Yes (Death, Hospitalization)
  Sender: FDA-Public Use
  Company Number: US-AMGEN-KDL442967

PATIENT
  Sex: Male
  Weight: 112.6 kg

DRUGS (4)
  1. PROCRIT [Suspect]
     Indication: ANAEMIA
     Route: 058
  2. INSULIN [Concomitant]
     Route: 058
  3. CARDIAC MEDICATION NOS [Concomitant]
  4. LIPITOR [Concomitant]

REACTIONS (2)
  - DEATH [None]
  - HOSPITALISATION [None]
